FAERS Safety Report 8102470-4 (Version None)
Quarter: 2012Q1

REPORT INFORMATION
  Report Type: 
  Country: None (occurrence: None)
  Receive Date: 20120201
  Receipt Date: 20120126
  Transmission Date: 20120608
  Serious: Yes (Death, Other)
  Sender: FDA-Public Use
  Company Number: LT-ELI_LILLY_AND_COMPANY-LT201112006441

PATIENT
  Age: 28 Year
  Sex: Male

DRUGS (2)
  1. OLANZAPINE [Suspect]
     Indication: SCHIZOPHRENIA
     Dosage: 300 MG, EVERY 2 WEEKS
     Route: 030
     Dates: start: 20110501
  2. HALOPERIDOL DECANOATE [Concomitant]
     Dosage: UNK UNK, SINGLE
     Dates: start: 20111001

REACTIONS (2)
  - SUDDEN CARDIAC DEATH [None]
  - DRUG ABUSE [None]
